FAERS Safety Report 4704200-2 (Version None)
Quarter: 2005Q2

REPORT INFORMATION
  Report Type: 
  Country: None (occurrence: None)
  Receive Date: 20050629
  Receipt Date: 20050615
  Transmission Date: 20051028
  Serious: Yes (Hospitalization)
  Sender: FDA-Public Use
  Company Number: UK139651

PATIENT
  Sex: Female

DRUGS (3)
  1. MIMPARA [Suspect]
     Indication: HYPERPARATHYROIDISM SECONDARY
     Dosage: 30 MG, 1 IN 1 DAYS, PO
     Route: 048
  2. CYCLOSPORINE [Concomitant]
  3. PREDNISONE TAB [Concomitant]

REACTIONS (1)
  - MYOCARDIAL INFARCTION [None]
